FAERS Safety Report 17276181 (Version 1)
Quarter: 2020Q1

REPORT INFORMATION
  Report Type: Spontaneous
  Country: DK (occurrence: DK)
  Receive Date: 20200116
  Receipt Date: 20200116
  Transmission Date: 20200409
  Serious: Yes (Hospitalization)
  Sender: FDA-Public Use
  Company Number: DK-B.I. PHARMACEUTICALS,INC./RIDGEFIELD-2020-12-001870

PATIENT
  Age: 65 Year
  Sex: Male

DRUGS (10)
  1. METFORMIN [Concomitant]
     Active Substance: METFORMIN HYDROCHLORIDE
     Indication: TYPE 2 DIABETES MELLITUS
     Dosage: STYRKE: 1000 MG
     Route: 048
     Dates: start: 20121130
  2. ATORVASTATIN [Concomitant]
     Active Substance: ATORVASTATIN
     Indication: HYPERCHOLESTEROLAEMIA
     Dosage: STYRKE: 20 MG
     Route: 048
     Dates: start: 20170331
  3. PARACETAMOL [Concomitant]
     Active Substance: ACETAMINOPHEN
     Indication: PAIN
     Dosage: STYRKE: 665 MG?MODIFIED-RELEASE TABLET
     Route: 048
     Dates: start: 20160308
  4. ULTIBRO BREEZHALER [Concomitant]
     Active Substance: GLYCOPYRRONIUM\INDACATEROL
     Indication: CHRONIC OBSTRUCTIVE PULMONARY DISEASE
     Dosage: STYRKE: 85+43 MIKROGRAM
     Route: 055
     Dates: start: 20170529
  5. LERCANIDIPINE [Concomitant]
     Active Substance: LERCANIDIPINE
     Indication: HYPERTENSION
     Dosage: STYRKE: 10 MG
     Route: 048
     Dates: start: 20170331
  6. METOPROLOL. [Concomitant]
     Active Substance: METOPROLOL
     Indication: HYPERTENSION
     Dosage: STYRKE: 100 MG
     Route: 048
     Dates: start: 20120718
  7. LIRAGLUTIDE [Concomitant]
     Active Substance: LIRAGLUTIDE
     Indication: TYPE 2 DIABETES MELLITUS
     Dosage: STYRKE: 6 MG/ML?SOLUTION FOR INJECTION IN PRE-FILLED PEN
     Route: 058
     Dates: start: 20120308
  8. XARELTO [Concomitant]
     Active Substance: RIVAROXABAN
     Indication: THROMBOSIS PROPHYLAXIS
     Dosage: STYRKE: 20 MG
     Route: 048
     Dates: start: 20180802
  9. JARDIANCE [Suspect]
     Active Substance: EMPAGLIFLOZIN
     Indication: TYPE 2 DIABETES MELLITUS
     Dosage: STYRKE: 25 MG
     Route: 048
     Dates: start: 20190430, end: 20191218
  10. LOSARTAN AND HYDROCHLOROTHIAZIDE [Concomitant]
     Active Substance: HYDROCHLOROTHIAZIDE\LOSARTAN POTASSIUM
     Indication: HYPERTENSION
     Dosage: STYRKE: 100+25 MG
     Route: 048
     Dates: start: 20110818

REACTIONS (3)
  - Urinary tract infection [Unknown]
  - Dysuria [Unknown]
  - Haematuria [Unknown]

NARRATIVE: CASE EVENT DATE: 2019
